FAERS Safety Report 4824902-7 (Version None)
Quarter: 2005Q4

REPORT INFORMATION
  Report Type: 
  Country: None (occurrence: None)
  Receive Date: 20051110
  Receipt Date: 20051107
  Transmission Date: 20060501
  Serious: Yes (Death)
  Sender: FDA-Public Use
  Company Number: HR-GLAXOSMITHKLINE-B0399909A

PATIENT
  Age: 11 Year
  Sex: Female

DRUGS (2)
  1. SERETIDE [Suspect]
     Indication: ASTHMA
  2. UNKNOWN MEDICATION [Concomitant]

REACTIONS (2)
  - ASTHMA [None]
  - DEATH [None]
